FAERS Safety Report 18436690 (Version 1)
Quarter: 2020Q4

REPORT INFORMATION
  Report Type: Spontaneous
  Country: FR (occurrence: FR)
  Receive Date: 20201028
  Receipt Date: 20201028
  Transmission Date: 20210114
  Serious: Yes (Hospitalization)
  Sender: FDA-Public Use
  Company Number: FR-PFIZER INC-2020410000

PATIENT
  Age: 65 Year
  Sex: Female
  Weight: 73 kg

DRUGS (14)
  1. PARACETAMOL [Concomitant]
     Active Substance: ACETAMINOPHEN
     Dosage: UNK
  2. RIFAMPICINE [Suspect]
     Active Substance: RIFAMPIN
     Dosage: 1800 MG, 1X/DAY
     Route: 048
     Dates: start: 20200805, end: 20200901
  3. TRAMADOL. [Concomitant]
     Active Substance: TRAMADOL
     Dosage: UNK
  4. GAVISCON [ALUMINIUM HYDROXIDE;MAGNESIUM CARBONATE;SODIUM ALGINATE] [Concomitant]
     Active Substance: ALUMINUM HYDROXIDE\MAGNESIUM CARBONATE\SODIUM ALGINATE
     Dosage: UNK
  5. LERCANIDIPINE [Suspect]
     Active Substance: LERCANIDIPINE
     Indication: HYPERTENSION
     Dosage: 5 MG, 1X/DAY
     Route: 048
     Dates: end: 20200820
  6. GLICLAZIDE [Suspect]
     Active Substance: GLICLAZIDE
     Indication: DIABETES MELLITUS
     Dosage: 180 MG, 1X/DAY(2CP 3/J)
     Route: 048
     Dates: end: 20200820
  7. EZETIMIBE. [Suspect]
     Active Substance: EZETIMIBE
     Dosage: 300 MG, 1X/DAY
     Route: 048
     Dates: end: 20200820
  8. GABAPENTIN. [Suspect]
     Active Substance: GABAPENTIN
     Indication: NEURALGIA
     Dosage: 300 MG, 1X/DAY
     Route: 048
     Dates: end: 20200820
  9. OFLOXACINE [Suspect]
     Active Substance: OFLOXACIN
     Dosage: 400 MG, 1X/DAY
     Route: 048
     Dates: start: 20200805, end: 20200901
  10. IRBESARTAN. [Suspect]
     Active Substance: IRBESARTAN
     Indication: HYPERTENSION
     Dosage: 300 MG, 1X/DAY
     Route: 048
     Dates: end: 20200820
  11. VICTOZA [Suspect]
     Active Substance: LIRAGLUTIDE
     Dosage: 1.8 MG, 1X/DAY
     Route: 042
     Dates: end: 20200820
  12. METFORMINE [Suspect]
     Active Substance: METFORMIN HYDROCHLORIDE
     Indication: DIABETES MELLITUS
     Dosage: 500 MG, 1X/DAY
     Route: 048
     Dates: end: 20200820
  13. DULOXETINE HYDROCHLORIDE. [Suspect]
     Active Substance: DULOXETINE HYDROCHLORIDE
     Indication: DEPRESSION
     Dosage: 60 MG, 1X/DAY
     Route: 048
     Dates: end: 20200820
  14. SMECTA [Concomitant]
     Active Substance: MONTMORILLONITE
     Dosage: UNK

REACTIONS (2)
  - Acute kidney injury [Recovered/Resolved]
  - Anuria [Recovered/Resolved]

NARRATIVE: CASE EVENT DATE: 20200819
